FAERS Safety Report 10193060 (Version 2)
Quarter: 2014Q2

REPORT INFORMATION
  Report Type: Spontaneous
  Country: US (occurrence: US)
  Receive Date: 20140524
  Receipt Date: 20140524
  Transmission Date: 20141212
  Serious: No
  Sender: FDA-Public Use
  Company Number: US-LUNDBECK-DKLU1097607

PATIENT
  Age: 36 Year
  Sex: Female

DRUGS (2)
  1. SABRIL     (TABLET) [Suspect]
     Indication: COMPLEX PARTIAL SEIZURES
     Dates: start: 20120928
  2. SABRIL     (TABLET) [Suspect]
     Indication: EPILEPSY

REACTIONS (1)
  - Drug dose omission [Unknown]
